FAERS Safety Report 5742285-5 (Version None)
Quarter: 2008Q2

REPORT INFORMATION
  Report Type: 
  Country: None (occurrence: None)
  Receive Date: 20080519
  Receipt Date: 20080514
  Transmission Date: 20081010
  Serious: Yes (Other)
  Sender: FDA-Public Use
  Company Number: PHBS2008SK04565

PATIENT
  Age: 57 Year
  Sex: Male

DRUGS (3)
  1. MYCOPHENOLATE MOFETIL [Concomitant]
     Indication: RENAL TRANSPLANT
  2. PREDNISONE [Concomitant]
     Indication: RENAL TRANSPLANT
  3. CYCLOSPORINE [Suspect]
     Indication: RENAL TRANSPLANT
     Dosage: UNK, UNK
     Route: 065
     Dates: start: 20040601

REACTIONS (5)
  - BIOPSY KIDNEY [None]
  - BLOOD CREATININE INCREASED [None]
  - HAEMATURIA [None]
  - IGA NEPHROPATHY [None]
  - NEPHROPATHY TOXIC [None]
